FAERS Safety Report 16993707 (Version 1)
Quarter: 2019Q4

REPORT INFORMATION
  Report Type: Spontaneous
  Country: US (occurrence: US)
  Receive Date: 20190923
  Receipt Date: 20190923
  Transmission Date: 20200122
  Serious: No
  Sender: FDA-Public Use
  Company Number: None

PATIENT
  Sex: Female

DRUGS (1)
  1. IBRANCE [Suspect]
     Active Substance: PALBOCICLIB
     Indication: BREAST CANCER FEMALE
     Dosage: DISCONTINUED
     Route: 048
     Dates: start: 20190907

REACTIONS (4)
  - Rash [None]
  - Oropharyngeal pain [None]
  - Arthralgia [None]
  - Asthenia [None]
